FAERS Safety Report 14936869 (Version 1)
Quarter: 2018Q2

REPORT INFORMATION
  Report Type: Spontaneous
  Country: US (occurrence: US)
  Receive Date: 20180525
  Receipt Date: 20180525
  Transmission Date: 20180711
  Serious: No
  Sender: FDA-Public Use
  Company Number: US-TEVA-2017-US-830182

PATIENT
  Age: 17 Year
  Sex: Female

DRUGS (1)
  1. JUNEL [Suspect]
     Active Substance: ETHINYL ESTRADIOL\NORETHINDRONE ACETATE
     Indication: MENSTRUATION IRREGULAR
     Dosage: 1DF : 1 MG NORETHINDRONE ACETATE AND 20 MCG ETHINYL ESTRADIOL
     Dates: start: 201703

REACTIONS (1)
  - Blood iron increased [Unknown]

NARRATIVE: CASE EVENT DATE: 201711
